FAERS Safety Report 23129467 (Version 1)
Quarter: 2023Q4

REPORT INFORMATION
  Report Type: Spontaneous
  Country: US (occurrence: None)
  Receive Date: 20231030
  Receipt Date: 20231030
  Transmission Date: 20240110
  Serious: Yes (Disabling, Other)
  Sender: FDA-Public Use
  Company Number: None

PATIENT
  Age: 71 Year
  Sex: Female

DRUGS (1)
  1. LUBRICANT EYE DROPS HIGH PERFORMANCE [Suspect]
     Active Substance: POLYETHYLENE GLYCOL 400\PROPYLENE GLYCOL
     Indication: Dry eye
     Dosage: OTHER QUANTITY : 1 DROP(S);?FREQUENCY : AS NEEDED;?
     Route: 047

REACTIONS (6)
  - Visual impairment [None]
  - Dizziness [None]
  - Headache [None]
  - Ear pain [None]
  - Nausea [None]
  - Balance disorder [None]

NARRATIVE: CASE EVENT DATE: 20230915
